FAERS Safety Report 21511054 (Version 4)
Quarter: 2025Q4

REPORT INFORMATION
  Report Type: Report from Study
  Country: CA (occurrence: CA)
  Receive Date: 20221027
  Receipt Date: 20251113
  Transmission Date: 20260118
  Serious: Yes (Other)
  Sender: AMGEN
  Company Number: CA-002147023-NVSC2022CA237240

PATIENT
  Sex: Female

DRUGS (1)
  1. AIMOVIG [Suspect]
     Active Substance: ERENUMAB-AOOE
     Indication: Migraine
     Dosage: UNK (INJECTION NOT OTHERWISE SPECIFIED)
     Route: 065
     Dates: start: 20210722

REACTIONS (8)
  - Ankylosing spondylitis [Unknown]
  - Fibromyalgia [Unknown]
  - Pain [Unknown]
  - Disturbance in attention [Unknown]
  - Headache [Unknown]
  - Irritability [Unknown]
  - Fatigue [Unknown]
  - Drug ineffective [Unknown]

NARRATIVE: CASE EVENT DATE: 20211101
